FAERS Safety Report 21417637 (Version 1)
Quarter: 2022Q4

REPORT INFORMATION
  Report Type: Spontaneous
  Country: US (occurrence: US)
  Receive Date: 20221006
  Receipt Date: 20221006
  Transmission Date: 20230113
  Serious: Yes (Other)
  Sender: FDA-Public Use
  Company Number: US-MYLANLABS-2022M1111214

PATIENT
  Age: 56 Year
  Sex: Female
  Weight: 98.42 kg

DRUGS (11)
  1. VALSARTAN [Suspect]
     Active Substance: VALSARTAN
     Indication: Product used for unknown indication
     Dosage: UNK
     Route: 065
  2. HYDROCHLOROTHIAZIDE\VALSARTAN [Suspect]
     Active Substance: HYDROCHLOROTHIAZIDE\VALSARTAN
     Indication: Hypertension
     Dosage: 320-25 MILLIGRAM
     Route: 065
     Dates: start: 20150915, end: 20150930
  3. HYDROCHLOROTHIAZIDE\VALSARTAN [Suspect]
     Active Substance: HYDROCHLOROTHIAZIDE\VALSARTAN
     Indication: Hypertension
     Dosage: 320-25 MILLIGRAM
     Route: 065
     Dates: start: 20151023, end: 20170720
  4. HYDROCHLOROTHIAZIDE\VALSARTAN [Suspect]
     Active Substance: HYDROCHLOROTHIAZIDE\VALSARTAN
     Indication: Hypertension
     Dosage: 320-25 MILLIGRAM
     Route: 065
     Dates: start: 20170824, end: 20180617
  5. DIOVAN HCT [Suspect]
     Active Substance: HYDROCHLOROTHIAZIDE\VALSARTAN
     Indication: Hypertension
     Dosage: 320-25 MILLIGRAM, QD (ONCE DAILY)
     Route: 065
     Dates: start: 2009, end: 2011
  6. METFORMIN [Concomitant]
     Active Substance: METFORMIN HYDROCHLORIDE
     Indication: Diabetes mellitus
     Dosage: 500 MILLIGRAM, 1,000 MILLIGRAM, BID (TWICE DAILY)
     Route: 065
     Dates: start: 2007
  7. AMLODIPINE BESYLATE [Concomitant]
     Active Substance: AMLODIPINE BESYLATE
     Indication: Hypertension
     Dosage: 10 MILLIGRAM, QD (ONCE DAILY)
     Route: 065
     Dates: start: 2010
  8. FISH OIL [Concomitant]
     Active Substance: FISH OIL
     Indication: Prophylaxis
     Dosage: 1 DOSAGE FORM, QD (1 TABLET PER DAY)
     Route: 065
     Dates: start: 2016, end: 2017
  9. VITAMIN D [Concomitant]
     Active Substance: VITAMIN D NOS
     Indication: Prophylaxis
     Dosage: 1 DOSAGE FORM, QD (1 TABLET PER DAY)
     Route: 065
     Dates: start: 2019
  10. LOSARTAN [Concomitant]
     Active Substance: LOSARTAN
     Dosage: UNK
     Route: 065
  11. IRBESARTAN [Concomitant]
     Active Substance: IRBESARTAN
     Dosage: UNK
     Route: 065

REACTIONS (1)
  - Small intestine carcinoma [Unknown]

NARRATIVE: CASE EVENT DATE: 20181105
